FAERS Safety Report 9822705 (Version 2)
Quarter: 2014Q1

REPORT INFORMATION
  Report Type: Report from Study
  Country: US (occurrence: US)
  Receive Date: 20140116
  Receipt Date: 20140320
  Transmission Date: 20141002
  Serious: Yes (Hospitalization)
  Sender: FDA-Public Use
  Company Number: US-ROCHE-1332206

PATIENT
  Sex: Female
  Weight: 65.3 kg

DRUGS (7)
  1. XOLAIR [Suspect]
     Indication: ASTHMA
     Route: 058
     Dates: start: 20130314
  2. PROVENTIL [Concomitant]
     Route: 065
  3. ADVAIR [Concomitant]
     Dosage: 500/50 1 PUFF
     Route: 065
  4. SINGULAIR [Concomitant]
     Route: 065
  5. ALBUTEROL [Concomitant]
     Route: 065
  6. MEDROXYPROGESTERONE [Concomitant]
     Route: 030
     Dates: start: 20120820
  7. OMEPRAZOLE [Concomitant]

REACTIONS (3)
  - Asthma [Unknown]
  - Rhinitis allergic [Unknown]
  - Conjunctivitis allergic [Unknown]
